FAERS Safety Report 14289259 (Version 4)
Quarter: 2020Q4

REPORT INFORMATION
  Report Type: Spontaneous
  Country: US (occurrence: US)
  Receive Date: 20171214
  Receipt Date: 20201215
  Transmission Date: 20210113
  Serious: Yes (Death, Other)
  Sender: FDA-Public Use
  Company Number: US-TEVA-2017-US-833121

PATIENT
  Age: 81 Year
  Sex: Male

DRUGS (1)
  1. TRISENOX [Suspect]
     Active Substance: ARSENIC TRIOXIDE
     Indication: ACUTE PROMYELOCYTIC LEUKAEMIA
     Route: 042

REACTIONS (6)
  - Neutropenia [Unknown]
  - Haemorrhagic stroke [Fatal]
  - Atrioventricular block first degree [Unknown]
  - Venous occlusion [Unknown]
  - Atrioventricular block second degree [Unknown]
  - Thrombocytopenia [Unknown]
